FAERS Safety Report 4391959-X (Version None)
Quarter: 2004Q3

REPORT INFORMATION
  Report Type: 
  Country: None (occurrence: None)
  Receive Date: 20040701
  Receipt Date: 20040623
  Transmission Date: 20050211
  Serious: Yes (Death)
  Sender: FDA-Public Use
  Company Number: USA-2003-0005189

PATIENT
  Age: 38 Year
  Sex: Male
  Weight: 90.7 kg

DRUGS (7)
  1. OXYCONTIN [Suspect]
     Indication: PAIN
     Dosage: 80 MG
  2. CARBAMAZEPINE [Suspect]
  3. NEURONTIN [Concomitant]
  4. ELAVIL [Concomitant]
  5. AMBIEN [Concomitant]
  6. CELEBREX [Concomitant]
  7. CELEXA [Concomitant]

REACTIONS (7)
  - ABDOMINAL ADHESIONS [None]
  - ACCIDENT [None]
  - DRUG TOXICITY [None]
  - MOUTH CYST [None]
  - PULMONARY CONGESTION [None]
  - PULMONARY OEDEMA [None]
  - TOOTH IMPACTED [None]
